FAERS Safety Report 25859655 (Version 1)
Quarter: 2025Q3

REPORT INFORMATION
  Report Type: Spontaneous
  Country: US (occurrence: None)
  Receive Date: 20250926
  Receipt Date: 20250926
  Transmission Date: 20251021
  Serious: Yes (Other)
  Sender: FDA-CTU
  Company Number: None

PATIENT
  Age: 65 Year
  Sex: Female
  Weight: 61.2 kg

DRUGS (18)
  1. LENVIMA [Suspect]
     Active Substance: LENVATINIB
     Indication: Thyroid cancer
     Dosage: FREQUENCY : DAILY;?
     Route: 048
     Dates: start: 20250919, end: 20250925
  2. HYDROCHLOROTHIAZIDE [Concomitant]
     Active Substance: HYDROCHLOROTHIAZIDE
  3. AMLODIPINE [Concomitant]
     Active Substance: AMLODIPINE BESYLATE
  4. CLOPIDOGREL [Concomitant]
     Active Substance: CLOPIDOGREL BISULFATE
  5. Sulfamethoxazole/ Trimethoprim 160-80mg [Concomitant]
  6. LEVOTHYROXINE SODIUM [Concomitant]
     Active Substance: LEVOTHYROXINE SODIUM
  7. ATORVASTATIN [Concomitant]
     Active Substance: ATORVASTATIN
  8. Prochlorperazine 10mg [Concomitant]
  9. TRAMADOL [Concomitant]
     Active Substance: TRAMADOL
  10. Hydrocodone- Acetaminophen 10-325mg [Concomitant]
  11. IBUPROFEN [Concomitant]
     Active Substance: IBUPROFEN
  12. Vitamin D2 50,000 unit capsule [Concomitant]
  13. Ferrous sulfate 325mg tab [Concomitant]
  14. Nicotinamide (dose unknown) [Concomitant]
  15. Colace 100mg cap [Concomitant]
  16. VITAMINS [Concomitant]
     Active Substance: VITAMINS
  17. Zinc Sulfate 220mg [Concomitant]
  18. Nervima Roll-On 4-1% liquid [Concomitant]

REACTIONS (1)
  - Blood pressure increased [None]

NARRATIVE: CASE EVENT DATE: 20250925
